FAERS Safety Report 6915914-8 (Version None)
Quarter: 2010Q3

REPORT INFORMATION
  Report Type: 
  Country: None (occurrence: None)
  Receive Date: 20100804
  Receipt Date: 20100728
  Transmission Date: 20110219
  Serious: Yes (Hospitalization, Other)
  Sender: FDA-Public Use
  Company Number: A-CH2010-38346

PATIENT
  Age: 20 Year
  Sex: Male

DRUGS (13)
  1. TRACLEER [Suspect]
     Indication: PULMONARY ARTERIAL HYPERTENSION
     Dosage: 93.75 MG, BID, ORAL
     Route: 048
     Dates: start: 20060301, end: 20100717
  2. MINOCYCLINE HYDROCHLORIDE [Suspect]
  3. IBUPROFEN [Suspect]
  4. ASCORBIC ACID [Suspect]
  5. CALCIUM PANTOTHENATE (CALCIUM PANTOTHENATE) [Suspect]
  6. PYRIDOXAL PHOSPHATE (PYRIDOXAL PHOSPHATE) [Suspect]
  7. TRANEXAMIC ACID (TRANEXAMIC ACID) [Suspect]
  8. FLAVINE ADENINE DINUCLIOTIDE (FLAVINE ADENINE DINUCLEOTIDE) [Suspect]
  9. CARBOCISTEINE (CARBOCISTEINE) [Suspect]
  10. AMBROXOL HYDROCHLORIDE (AMBROXOL HYDROCHLORIDE) [Suspect]
  11. CLENBUTEROL HYDROCHLORIDE (CLENBUTEROL HYDROCHLORIDE) [Suspect]
  12. TREPROSTINIL (TREPROSTINIL) [Concomitant]
  13. SILDENAFIL CITRATE [Concomitant]

REACTIONS (2)
  - ALANINE AMINOTRANSFERASE INCREASED [None]
  - ASPARTATE AMINOTRANSFERASE INCREASED [None]
